FAERS Safety Report 19841524 (Version 10)
Quarter: 2023Q2

REPORT INFORMATION
  Report Type: Report from Study
  Country: US (occurrence: US)
  Receive Date: 20210915
  Receipt Date: 20230615
  Transmission Date: 20230721
  Serious: Yes (Other)
  Sender: FDA-Public Use
  Company Number: US-NOVARTISTESTPH-NVSC2021US208346

PATIENT
  Sex: Male

DRUGS (1)
  1. KESIMPTA [Suspect]
     Active Substance: OFATUMUMAB
     Indication: Multiple sclerosis
     Dosage: UNK
     Route: 058
     Dates: start: 20210806

REACTIONS (12)
  - Nephrolithiasis [Unknown]
  - Multiple sclerosis [Not Recovered/Not Resolved]
  - Balance disorder [Recovering/Resolving]
  - Gait disturbance [Not Recovered/Not Resolved]
  - Asthenia [Recovering/Resolving]
  - Pruritus [Recovered/Resolved]
  - Back pain [Unknown]
  - Mobility decreased [Unknown]
  - Inflammation [Not Recovered/Not Resolved]
  - Arthritis [Unknown]
  - Nerve compression [Unknown]
  - Drug ineffective [Unknown]
